FAERS Safety Report 18269115 (Version 2)
Quarter: 2020Q3

REPORT INFORMATION
  Report Type: Spontaneous
  Country: US (occurrence: US)
  Receive Date: 20200915
  Receipt Date: 20200915
  Transmission Date: 20201103
  Serious: Yes (Hospitalization)
  Sender: FDA-Public Use
  Company Number: US-CELGENEUS-USA-20200902204

PATIENT
  Age: 67 Year
  Sex: Female
  Weight: 52.21 kg

DRUGS (1)
  1. REBLOZYL [Suspect]
     Active Substance: LUSPATERCEPT-AAMT
     Indication: MYELODYSPLASTIC SYNDROME
     Dosage: 1.33 MILLIGRAM/KILOGRAM
     Route: 041
     Dates: start: 2020, end: 20200824

REACTIONS (4)
  - Febrile neutropenia [Unknown]
  - Haemoglobin decreased [Unknown]
  - Fatigue [Unknown]
  - Drug ineffective [Unknown]

NARRATIVE: CASE EVENT DATE: 20200802
